FAERS Safety Report 21382733 (Version 4)
Quarter: 2022Q4

REPORT INFORMATION
  Report Type: Report from Study
  Country: US (occurrence: US)
  Receive Date: 20220927
  Receipt Date: 20221226
  Transmission Date: 20230113
  Serious: Yes (Hospitalization)
  Sender: FDA-Public Use
  Company Number: US-ABBVIE-22K-163-4482053-00

PATIENT
  Age: 71 Year
  Sex: Male

DRUGS (2)
  1. IMBRUVICA [Suspect]
     Active Substance: IBRUTINIB
     Indication: Chronic lymphocytic leukaemia
     Route: 048
     Dates: start: 20220502
  2. RITUXAN [Concomitant]
     Active Substance: RITUXIMAB
     Indication: Chronic lymphocytic leukaemia
     Dates: start: 20220502

REACTIONS (11)
  - COVID-19 [Recovering/Resolving]
  - Lethargy [Recovering/Resolving]
  - Memory impairment [Unknown]
  - Feeling abnormal [Unknown]
  - Fall [Unknown]
  - Chronic sinusitis [Unknown]
  - Weight decreased [Unknown]
  - Anxiety [Unknown]
  - Pneumonia [Recovering/Resolving]
  - Dehydration [Recovered/Resolved]
  - Unevaluable event [Unknown]

NARRATIVE: CASE EVENT DATE: 20221130
